FAERS Safety Report 6910759-7 (Version None)
Quarter: 2010Q3

REPORT INFORMATION
  Report Type: 
  Country: None (occurrence: None)
  Receive Date: 20100806
  Receipt Date: 20100728
  Transmission Date: 20110219
  Serious: Yes (Other)
  Sender: FDA-Public Use
  Company Number: AR-B.I. PHARMACEUTICALS,INC./RIDGEFIELD-2010-BP-08614BP

PATIENT
  Age: 34 Year
  Sex: Female

DRUGS (6)
  1. VIRAMUNE [Suspect]
     Indication: ANTIRETROVIRAL THERAPY
     Route: 048
     Dates: start: 20021225, end: 20030108
  2. VIRAMUNE [Suspect]
     Route: 048
     Dates: start: 20030109
  3. COMBIVIR [Concomitant]
     Indication: ANTIRETROVIRAL THERAPY
     Route: 048
     Dates: start: 20021225
  4. TRIMETHOPRIM + SULFAMETHOXAZOLE [Concomitant]
  5. FERROUS SULFATE [Concomitant]
  6. SULFAMETHOXAZOLE [Concomitant]

REACTIONS (1)
  - STILLBIRTH [None]
